FAERS Safety Report 14868053 (Version 1)
Quarter: 2018Q2

REPORT INFORMATION
  Report Type: Spontaneous
  Country: FR (occurrence: FR)
  Receive Date: 20180509
  Receipt Date: 20180509
  Transmission Date: 20180711
  Serious: Yes (Other)
  Sender: FDA-Public Use
  Company Number: FR-MERCK KGAA-2047429

PATIENT
  Age: 60 Year
  Sex: Female

DRUGS (1)
  1. NOVOTHYROX [Suspect]
     Active Substance: LEVOTHYROXINE SODIUM
     Indication: PRODUCT USED FOR UNKNOWN INDICATION
     Dates: start: 20170429

REACTIONS (37)
  - Fatigue [None]
  - Mental fatigue [None]
  - Amnesia [None]
  - Dysphonia [None]
  - Somnolence [None]
  - Loss of personal independence in daily activities [None]
  - Wrong drug administered [None]
  - Renal impairment [None]
  - Cerebral disorder [None]
  - Oropharyngeal swelling [None]
  - Gait disturbance [None]
  - Dyspnoea [None]
  - Head discomfort [None]
  - Weight increased [None]
  - Emotional distress [None]
  - Blood thyroid stimulating hormone increased [None]
  - Memory impairment [None]
  - Arthralgia [None]
  - Myalgia [None]
  - Decreased appetite [None]
  - Personal relationship issue [None]
  - Hallucination, auditory [None]
  - Cough [None]
  - Social avoidant behaviour [None]
  - Gastrointestinal tract irritation [None]
  - Back pain [None]
  - Irritability [None]
  - Mental impairment [None]
  - Mood swings [None]
  - Inflammation [None]
  - Neuralgia [None]
  - Aphasia [None]
  - Anxiety disorder [None]
  - Dehydration [None]
  - Gastrointestinal disorder [None]
  - Negative thoughts [None]
  - Apathy [None]

NARRATIVE: CASE EVENT DATE: 20170429
